FAERS Safety Report 7812725-6 (Version None)
Quarter: 2011Q4

REPORT INFORMATION
  Report Type: 
  Country: None (occurrence: None)
  Receive Date: 20111013
  Receipt Date: 20111004
  Transmission Date: 20120403
  Serious: Yes (Death)
  Sender: FDA-Public Use
  Company Number: NO-ACTELION-A-CH2011-54478

PATIENT
  Sex: Male

DRUGS (1)
  1. TRACLEER [Suspect]
     Indication: PULMONARY ARTERIAL HYPERTENSION
     Dosage: UNK
     Route: 048

REACTIONS (3)
  - PULMONARY ARTERIAL HYPERTENSION [None]
  - LIVER FUNCTION TEST ABNORMAL [None]
  - DISEASE PROGRESSION [None]
